FAERS Safety Report 14727089 (Version 4)
Quarter: 2018Q2

REPORT INFORMATION
  Report Type: Report from Study
  Country: JP (occurrence: JP)
  Receive Date: 20180406
  Receipt Date: 20180525
  Transmission Date: 20180711
  Serious: Yes (Hospitalization)
  Sender: FDA-Public Use
  Company Number: JP-ROCHE-2102341

PATIENT
  Age: 76 Year
  Sex: Male
  Weight: 66.8 kg

DRUGS (14)
  1. CARBOPLATIN. [Suspect]
     Active Substance: CARBOPLATIN
     Indication: NON-SMALL CELL LUNG CANCER STAGE IV
     Dosage: DOSE AS PER PROTOCOL: CARBOPLATIN ON DAY 1 Q3W WITH A DOSE CALCULATED USING ^CALVERT FORMULA^ TO OBT
     Route: 042
     Dates: start: 20161005
  2. PEMETREXED. [Suspect]
     Active Substance: PEMETREXED
     Indication: NON-SMALL CELL LUNG CANCER STAGE IV
     Dosage: DATE OF MOST RECENT DOSE 840 MG OF PEMETREXED PRIOR TO AE ONSET 20 FEB 2018
     Route: 042
     Dates: start: 20161005
  3. AMVALO [Concomitant]
     Indication: HYPERTENSION
  4. KARY UNI [Concomitant]
     Active Substance: PIRENOXINE
     Indication: CATARACT
     Route: 065
     Dates: end: 20180403
  5. ATEZOLIZUMAB. [Suspect]
     Active Substance: ATEZOLIZUMAB
     Indication: NON-SMALL CELL LUNG CANCER STAGE IV
     Dosage: DATE OF MOST RECENT DOSE 1200 MG OF MPDL3280A TO AE ONSET 20 FEB 2018
     Route: 042
     Dates: start: 20161005
  6. GRANISETRON [Concomitant]
     Active Substance: GRANISETRON
     Route: 065
     Dates: start: 20161227
  7. MAGMITT [Concomitant]
     Active Substance: MAGNESIUM OXIDE
     Indication: CONSTIPATION
     Route: 065
     Dates: start: 20161006, end: 20180403
  8. LUPRAC [Concomitant]
     Active Substance: TORSEMIDE
     Indication: OEDEMA PERIPHERAL
  9. ALDACTONE-A (JAPAN) [Concomitant]
     Indication: FACE OEDEMA
     Route: 065
     Dates: start: 20170922
  10. TRICHLORMETHIAZIDE [Concomitant]
     Active Substance: TRICHLORMETHIAZIDE
     Indication: HYPERTENSION
  11. PURSENNID [Concomitant]
     Active Substance: SENNOSIDES A AND B
     Indication: CONSTIPATION
     Route: 065
     Dates: end: 20180327
  12. IOPAQUE [Concomitant]
     Active Substance: IOHEXOL
     Route: 065
     Dates: start: 20160927
  13. LUPRAC [Concomitant]
     Active Substance: TORSEMIDE
     Indication: FACE OEDEMA
     Route: 065
     Dates: start: 20170922
  14. ALDACTONE-A (JAPAN) [Concomitant]
     Indication: OEDEMA PERIPHERAL

REACTIONS (1)
  - Gait disturbance [Not Recovered/Not Resolved]

NARRATIVE: CASE EVENT DATE: 20180403
